FAERS Safety Report 25634643 (Version 2)
Quarter: 2025Q3

REPORT INFORMATION
  Report Type: Spontaneous
  Country: US (occurrence: US)
  Receive Date: 20250801
  Receipt Date: 20250819
  Transmission Date: 20251021
  Serious: Yes (Hospitalization, Other)
  Sender: SANOFI AVENTIS
  Company Number: US-SA-2025SA223083

PATIENT
  Age: 59 Year
  Sex: Male

DRUGS (5)
  1. DUPIXENT [Suspect]
     Active Substance: DUPILUMAB
     Indication: Nasal polyps
     Route: 058
     Dates: start: 20250605, end: 202506
  2. DUPIXENT [Suspect]
     Active Substance: DUPILUMAB
     Dosage: 300 MG, QOW
     Route: 058
     Dates: start: 20250719
  3. OXYGEN [Suspect]
     Active Substance: OXYGEN
     Indication: Pneumonia
     Route: 055
     Dates: start: 2025
  4. OXYGEN [Suspect]
     Active Substance: OXYGEN
     Indication: Dyspnoea
  5. RYDAPT [Concomitant]
     Active Substance: MIDOSTAURIN

REACTIONS (8)
  - Dizziness [Unknown]
  - Pneumonia [Recovering/Resolving]
  - Dyspnoea [Recovering/Resolving]
  - Vomiting [Recovering/Resolving]
  - Nervousness [Recovering/Resolving]
  - Muscle strain [Recovering/Resolving]
  - Arthralgia [Recovering/Resolving]
  - Nasal dryness [Recovering/Resolving]

NARRATIVE: CASE EVENT DATE: 20250101
